FAERS Safety Report 12931214 (Version 1)
Quarter: 2016Q4

REPORT INFORMATION
  Report Type: Spontaneous
  Country: US (occurrence: US)
  Receive Date: 20161110
  Receipt Date: 20161110
  Transmission Date: 20170207
  Serious: No
  Sender: FDA-Public Use
  Company Number: US-JAZZ-2016-US-018134

PATIENT
  Age: 59 Year
  Sex: Female
  Weight: 56.24 kg

DRUGS (13)
  1. XYREM [Suspect]
     Active Substance: SODIUM OXYBATE
     Indication: NARCOLEPSY
     Dosage: 2.25 G, BID
     Route: 048
     Dates: start: 201409, end: 2016
  2. TRAMADOL HCL [Concomitant]
     Active Substance: TRAMADOL HYDROCHLORIDE
  3. XYREM [Suspect]
     Active Substance: SODIUM OXYBATE
     Dosage: 2.5 G, BID
     Route: 048
     Dates: start: 2016
  4. PRILOSEC [Concomitant]
     Active Substance: OMEPRAZOLE MAGNESIUM
  5. CALCIUM CITRATE [Concomitant]
     Active Substance: CALCIUM CITRATE
  6. NABUMETONE. [Concomitant]
     Active Substance: NABUMETONE
  7. PROCARDIA [Concomitant]
     Active Substance: NIFEDIPINE
  8. MYRBETRIQ [Concomitant]
     Active Substance: MIRABEGRON
  9. CRANBERRY                          /01512301/ [Concomitant]
     Active Substance: CRANBERRY
  10. MAGNESIUM [Concomitant]
     Active Substance: MAGNESIUM
  11. DETROL LA [Concomitant]
     Active Substance: TOLTERODINE TARTRATE
  12. LAMISIL [Concomitant]
     Active Substance: TERBINAFINE HYDROCHLORIDE
  13. INDERAL [Concomitant]
     Active Substance: PROPRANOLOL HYDROCHLORIDE

REACTIONS (3)
  - Bronchitis [Recovering/Resolving]
  - Sinusitis [Recovering/Resolving]
  - Cough [Recovering/Resolving]

NARRATIVE: CASE EVENT DATE: 20160908
